FAERS Safety Report 8164222-9 (Version None)
Quarter: 2012Q1

REPORT INFORMATION
  Report Type: 
  Country: None (occurrence: None)
  Receive Date: 20120224
  Receipt Date: 20120224
  Transmission Date: 20120608
  Serious: No
  Sender: FDA-Public Use
  Company Number: US-B.I. PHARMACEUTICALS,INC./RIDGEFIELD-2011-BP-22162BP

PATIENT
  Sex: Male

DRUGS (15)
  1. LOVAZA [Concomitant]
     Indication: BLOOD TRIGLYCERIDES
     Dosage: 1 G
  2. NEXIUM [Concomitant]
     Indication: GASTROOESOPHAGEAL REFLUX DISEASE
     Dosage: 40 MG
  3. NITROSTAT [Concomitant]
     Indication: CHEST PAIN
     Dosage: 0.4 MG
  4. LASIX [Concomitant]
     Indication: DIURETIC THERAPY
     Dosage: 40 MG
  5. FENOFIBRATE [Concomitant]
     Indication: BLOOD CHOLESTEROL
     Dosage: 134 MG
  6. GLIPIZIDE [Concomitant]
     Indication: DIABETES MELLITUS
     Dosage: 10 MG
  7. CLONIDINE [Concomitant]
     Dosage: 0.1 MG
  8. LORAZEPAM [Concomitant]
     Indication: AFRICAN TRYPANOSOMIASIS
     Dosage: 0.5 MG
  9. SIMVASTATIN [Concomitant]
     Indication: BLOOD CHOLESTEROL
     Dosage: 40 MG
  10. JANUVIA [Concomitant]
     Indication: DIABETES MELLITUS
     Dosage: 100 MG
  11. MIRAPEX [Suspect]
     Indication: RESTLESS LEGS SYNDROME
     Dates: start: 19970101, end: 20100101
  12. NITROSTAT [Concomitant]
     Indication: GASTROOESOPHAGEAL REFLUX DISEASE
  13. PLAVIX [Concomitant]
     Indication: CARDIOVASCULAR DISORDER
     Dosage: 75 MG
  14. TRIAMTERENE AND HYDROCHLOROTHIAZIDE [Concomitant]
     Indication: BLOOD PRESSURE
     Dosage: 37.5/25
  15. METOPROLOL TARTRATE [Concomitant]
     Indication: BLOOD PRESSURE
     Dosage: 40 MG

REACTIONS (10)
  - IMPULSE-CONTROL DISORDER [None]
  - OBSESSIVE-COMPULSIVE DISORDER [None]
  - PATHOLOGICAL GAMBLING [None]
  - RENAL FAILURE [None]
  - BALANCE DISORDER [None]
  - HYPERSEXUALITY [None]
  - ERECTILE DYSFUNCTION [None]
  - SOMNOLENCE [None]
  - OEDEMA [None]
  - INSOMNIA [None]
